FAERS Safety Report 6461103-3 (Version None)
Quarter: 2009Q4

REPORT INFORMATION
  Report Type: 
  Country: None (occurrence: None)
  Receive Date: 20091130
  Receipt Date: 20091125
  Transmission Date: 20100525
  Serious: Yes (Other)
  Sender: FDA-Public Use
  Company Number: B0608394A

PATIENT
  Age: 37 Year
  Sex: Female

DRUGS (4)
  1. LAMICTIN [Suspect]
     Dosage: 300MG PER DAY
     Route: 065
     Dates: end: 20090801
  2. CIPRALEX [Suspect]
     Indication: DRUG USE FOR UNKNOWN INDICATION
     Route: 065
  3. GUAIFENESIN [Suspect]
     Indication: DRUG USE FOR UNKNOWN INDICATION
     Route: 065
  4. LITHIUM [Suspect]
     Indication: DRUG USE FOR UNKNOWN INDICATION
     Route: 065

REACTIONS (4)
  - CHEST DISCOMFORT [None]
  - DYSPNOEA [None]
  - PNEUMONIA [None]
  - RESPIRATION ABNORMAL [None]
